FAERS Safety Report 7995217-3 (Version None)
Quarter: 2011Q4

REPORT INFORMATION
  Report Type: 
  Country: None (occurrence: None)
  Receive Date: 20111220
  Receipt Date: 20111213
  Transmission Date: 20120403
  Serious: Yes (Other)
  Sender: FDA-Public Use
  Company Number: US-UCBSA-047472

PATIENT
  Age: 55 Year
  Sex: Female
  Weight: 62.14 kg

DRUGS (5)
  1. LASIX [Concomitant]
     Indication: FLUID RETENTION
     Route: 048
  2. POTASSIUM CHLORIDE [Concomitant]
     Indication: SUPPLEMENTATION THERAPY
     Route: 048
  3. CELEXA [Concomitant]
     Indication: PAIN
     Route: 048
     Dates: start: 20090101
  4. CIMZIA [Suspect]
     Indication: CROHN'S DISEASE
     Route: 058
     Dates: start: 20110601, end: 20111125
  5. PURINETHOL [Concomitant]
     Indication: CROHN'S DISEASE
     Route: 048
     Dates: start: 20000101

REACTIONS (3)
  - KIDNEY INFECTION [None]
  - PNEUMONIA [None]
  - BRONCHITIS [None]
